FAERS Safety Report 8784124 (Version 2)
Quarter: 2013Q4

REPORT INFORMATION
  Report Type: Spontaneous
  Country: US (occurrence: US)
  Receive Date: 20120913
  Receipt Date: 20131031
  Transmission Date: 20140711
  Serious: No
  Sender: FDA-Public Use
  Company Number: US-009507513-2012SP026450

PATIENT
  Age: 68 Year
  Sex: Female

DRUGS (4)
  1. DULERA [Suspect]
     Indication: CHRONIC OBSTRUCTIVE PULMONARY DISEASE
     Dosage: 2 DF, BID
     Route: 055
     Dates: start: 2011
  2. VENTOLIN (ALBUTEROL) [Concomitant]
     Indication: RESPIRATORY THERAPY
     Dosage: NEBULIZER TREATMENT
  3. IPRATROPIUM BROMIDE (WARRICK) [Concomitant]
     Indication: RESPIRATORY THERAPY
     Dosage: NEBULIZER TREATMENT
  4. PROVENTIL [Concomitant]
     Indication: RESPIRATORY THERAPY
     Dosage: NEBULIZER TREATMENT

REACTIONS (3)
  - Malaise [Unknown]
  - Drug dose omission [Unknown]
  - Off label use [Unknown]
